FAERS Safety Report 6088029-1 (Version None)
Quarter: 2009Q1

REPORT INFORMATION
  Report Type: 
  Country: None (occurrence: None)
  Receive Date: 20090217
  Receipt Date: 20090209
  Transmission Date: 20090719
  Serious: Yes (Other)
  Sender: FDA-Public Use
  Company Number: CHPA2009US03856

PATIENT
  Age: 82 Year
  Sex: Female

DRUGS (5)
  1. PERDIEM OVERNIGHT RELIEF PILLS (NCH) (SENNA GLYCOSIDES (CAL SALTS OF P [Suspect]
     Indication: CONSTIPATION
     Dosage: 30 MG, QD, ORAL
     Route: 048
  2. LIPITOR /NET (ATORVASTATIN CALCIUM) [Concomitant]
  3. LOPRESSOR (METOPROLOL TARTRATE) [Concomitant]
  4. LISINOPRIL [Concomitant]
  5. HYDROCHLOROTHIAZIDE [Concomitant]

REACTIONS (4)
  - AORTIC VALVE REPLACEMENT [None]
  - BLOOD CHOLESTEROL INCREASED [None]
  - HYPERTENSION [None]
  - INTENTIONAL DRUG MISUSE [None]
